FAERS Safety Report 10667529 (Version 2)
Quarter: 2015Q1

REPORT INFORMATION
  Report Type: Report from Study
  Country: JP (occurrence: JP)
  Receive Date: 20141222
  Receipt Date: 20150217
  Transmission Date: 20150720
  Serious: Yes (Other)
  Sender: FDA-Public Use
  Company Number: JP-JNJFOC-20141210697

PATIENT
  Age: 75 Year
  Sex: Male
  Weight: 47 kg

DRUGS (30)
  1. PEGINTRON [Suspect]
     Active Substance: PEGINTERFERON ALFA-2B
     Indication: CHRONIC HEPATITIS C
     Route: 058
     Dates: start: 20140709, end: 20140709
  2. LOCHOL [Concomitant]
     Active Substance: FLUVASTATIN SODIUM
     Indication: HYPERLIPIDAEMIA
     Route: 048
     Dates: start: 20140709, end: 20140722
  3. LAFUTIDINE [Concomitant]
     Active Substance: LAFUTIDINE
     Indication: GASTROOESOPHAGEAL REFLUX DISEASE
     Route: 048
     Dates: start: 20140730
  4. C-PARA [Concomitant]
     Indication: DECREASED APPETITE
     Route: 065
     Dates: start: 20140730, end: 20140730
  5. PEGINTRON [Suspect]
     Active Substance: PEGINTERFERON ALFA-2B
     Indication: CHRONIC HEPATITIS C
     Route: 058
     Dates: start: 20140716, end: 20140723
  6. GLYCYRRHIZA [Concomitant]
     Active Substance: LICORICE
     Indication: GASTROOESOPHAGEAL REFLUX DISEASE
     Route: 048
  7. EPINASTINE HYDROCHLORIDE. [Concomitant]
     Active Substance: EPINASTINE HYDROCHLORIDE
     Indication: PRURITUS
     Route: 048
     Dates: start: 20140716, end: 20140722
  8. SOLITA- NO 3 [Concomitant]
     Indication: DECREASED APPETITE
     Route: 065
     Dates: start: 20140806, end: 20140806
  9. PURSENNID [Concomitant]
     Active Substance: SENNOSIDES A AND B
     Indication: PROPHYLAXIS
     Route: 048
  10. IDOMETHINE [Concomitant]
     Active Substance: INDOMETHACIN
     Indication: CARNITINE DEFICIENCY
     Route: 061
  11. C-PARA [Concomitant]
     Indication: DECREASED APPETITE
     Route: 065
     Dates: start: 20140820, end: 20140820
  12. SOLITA- NO 3 [Concomitant]
     Indication: DECREASED APPETITE
     Route: 065
     Dates: start: 20140820, end: 20140820
  13. PEGINTRON [Suspect]
     Active Substance: PEGINTERFERON ALFA-2B
     Indication: CHRONIC HEPATITIS C
     Route: 058
     Dates: start: 20140716, end: 20140723
  14. ALLELOCK [Concomitant]
     Active Substance: OLOPATADINE HYDROCHLORIDE
     Indication: PRURITUS
     Route: 048
  15. MYSLEE [Concomitant]
     Active Substance: ZOLPIDEM TARTRATE
     Indication: PROPHYLAXIS
     Route: 048
  16. PARIET [Concomitant]
     Active Substance: RABEPRAZOLE SODIUM
     Indication: GASTROOESOPHAGEAL REFLUX DISEASE
     Route: 048
     Dates: start: 20140716, end: 20140722
  17. URSO [Concomitant]
     Active Substance: URSODIOL
     Indication: CHRONIC HEPATITIS C
     Route: 048
  18. AMLODIPINE [Concomitant]
     Active Substance: AMLODIPINE BESYLATE
     Indication: HYPERLIPIDAEMIA
     Route: 048
  19. LOXOPROFEN [Concomitant]
     Active Substance: LOXOPROFEN
     Indication: PROPHYLAXIS
     Route: 048
  20. L-CARTIN [Concomitant]
     Active Substance: LEVOCARNITINE HYDROCHLORIDE
     Indication: CARNITINE DEFICIENCY
     Route: 048
     Dates: start: 20140709, end: 20140722
  21. REBAMIPIDE [Concomitant]
     Active Substance: REBAMIPIDE
     Indication: PROPHYLAXIS
     Route: 065
     Dates: start: 20140709
  22. RIBAVIRIN. [Suspect]
     Active Substance: RIBAVIRIN
     Indication: CHRONIC HEPATITIS C
     Route: 048
     Dates: start: 20140709, end: 20140715
  23. PEGINTRON [Suspect]
     Active Substance: PEGINTERFERON ALFA-2B
     Indication: CHRONIC HEPATITIS C
     Route: 058
     Dates: start: 20140709, end: 20140709
  24. TEPRENONE [Concomitant]
     Active Substance: TEPRENONE
     Indication: PROPHYLAXIS
     Route: 048
     Dates: start: 20140709, end: 20140722
  25. C-PARA [Concomitant]
     Indication: DECREASED APPETITE
     Route: 065
     Dates: start: 20140806, end: 20140806
  26. SOVRIAD [Suspect]
     Active Substance: SIMEPREVIR
     Indication: CHRONIC HEPATITIS C
     Route: 048
     Dates: start: 20140709, end: 20140723
  27. RIBAVIRIN. [Suspect]
     Active Substance: RIBAVIRIN
     Indication: CHRONIC HEPATITIS C
     Route: 048
     Dates: start: 20140716, end: 20140723
  28. SOLITA- NO 3 [Concomitant]
     Indication: DECREASED APPETITE
     Route: 065
     Dates: start: 20140730, end: 20140730
  29. NAUZELIN [Concomitant]
     Active Substance: DOMPERIDONE
     Indication: DECREASED APPETITE
     Route: 048
     Dates: start: 20140716, end: 20140722
  30. DOMPERIDONE [Concomitant]
     Active Substance: DOMPERIDONE
     Indication: DECREASED APPETITE
     Route: 048
     Dates: start: 20140730, end: 20140805

REACTIONS (4)
  - Decreased appetite [Recovered/Resolved]
  - White blood cell count decreased [Not Recovered/Not Resolved]
  - Platelet count decreased [Not Recovered/Not Resolved]
  - Anaemia [Recovered/Resolved]

NARRATIVE: CASE EVENT DATE: 20140716
